FAERS Safety Report 17402150 (Version 5)
Quarter: 2020Q1

REPORT INFORMATION
  Report Type: Spontaneous
  Country: US (occurrence: US)
  Receive Date: 20200211
  Receipt Date: 20200323
  Transmission Date: 20200409
  Serious: No
  Sender: FDA-Public Use
  Company Number: US-PFIZER INC-2019522920

PATIENT
  Age: 62 Year
  Sex: Male

DRUGS (1)
  1. SUTENT [Suspect]
     Active Substance: SUNITINIB MALATE
     Indication: MALIGNANT NEOPLASM OF ISLETS OF LANGERHANS
     Dosage: 25 MG, DAILY (1 CAP PER ORAL DAILY)
     Route: 048

REACTIONS (9)
  - Platelet count decreased [Unknown]
  - Pain [Unknown]
  - White blood cell count decreased [Unknown]
  - Fatigue [Unknown]
  - Depression [Unknown]
  - Diarrhoea [Unknown]
  - Body temperature increased [Unknown]
  - Neoplasm progression [Unknown]
  - Asthenia [Unknown]
